FAERS Safety Report 20363625 (Version 6)
Quarter: 2022Q2

REPORT INFORMATION
  Report Type: Report from Study
  Country: DE (occurrence: DE)
  Receive Date: 20220121
  Receipt Date: 20220407
  Transmission Date: 20220721
  Serious: Yes (Life-Threatening)
  Sender: FDA-Public Use
  Company Number: DE-PFM-2021-11360

PATIENT

DRUGS (3)
  1. NERATINIB [Suspect]
     Active Substance: NERATINIB
     Indication: Breast cancer
     Dosage: 240 MG, QD (1/DAY)
     Route: 048
     Dates: start: 20211004
  2. NERATINIB [Suspect]
     Active Substance: NERATINIB
     Dosage: 120 MG, UNK
     Route: 048
     Dates: start: 20211201
  3. LOPERAMIDE [Concomitant]
     Active Substance: LOPERAMIDE
     Indication: Prophylaxis against diarrhoea
     Dosage: 4 MG, TID (3/DAY)
     Route: 048
     Dates: start: 20211004

REACTIONS (12)
  - Alanine aminotransferase abnormal [Recovering/Resolving]
  - Gamma-glutamyltransferase abnormal [Recovering/Resolving]
  - Constipation [Recovered/Resolved]
  - Nausea [Recovered/Resolved]
  - Fatigue [Not Recovered/Not Resolved]
  - Nausea [Recovered/Resolved]
  - Fatigue [Not Recovered/Not Resolved]
  - Rash [Recovering/Resolving]
  - Blood creatine increased [Recovered/Resolved]
  - Rash [Recovering/Resolving]
  - Wound haemorrhage [Not Recovered/Not Resolved]
  - Nausea [Not Recovered/Not Resolved]

NARRATIVE: CASE EVENT DATE: 20211005
